FAERS Safety Report 4522316-0 (Version None)
Quarter: 2004Q4

REPORT INFORMATION
  Report Type: 
  Country: None (occurrence: None)
  Receive Date: 20041209
  Receipt Date: 20031013
  Transmission Date: 20050328
  Serious: Yes (Hospitalization)
  Sender: FDA-Public Use
  Company Number: US-GLAXOSMITHKLINE-A0399037B

PATIENT
  Age: 47 Year
  Sex: Male
  Weight: 68.2 kg

DRUGS (1)
  1. SALMETEROL [Suspect]
     Dosage: 50MCG TWICE PER DAY
     Route: 055
     Dates: start: 20010906

REACTIONS (1)
  - CHRONIC OBSTRUCTIVE AIRWAYS DISEASE EXACERBATED [None]
